FAERS Safety Report 19629212 (Version 1)
Quarter: 2021Q3

REPORT INFORMATION
  Report Type: Other
  Country: None (occurrence: US)
  Receive Date: 20210729
  Receipt Date: 20210729
  Transmission Date: 20211014
  Serious: Yes (Other)
  Sender: FDA-Public Use
  Company Number: US-SHEFFIELD PHARMACEUTICALS, LLC-2114416

PATIENT
  Sex: Female

DRUGS (1)
  1. SHEFFIELD PAIN RELIEF [Suspect]
     Active Substance: BENZOCAINE
     Indication: ORAL PAIN
     Route: 048
     Dates: start: 20210706, end: 20210707

REACTIONS (1)
  - Tooth injury [Unknown]

NARRATIVE: CASE EVENT DATE: 20210727
